FAERS Safety Report 13410215 (Version 1)
Quarter: 2017Q2

REPORT INFORMATION
  Report Type: Spontaneous
  Country: US (occurrence: US)
  Receive Date: 20170406
  Receipt Date: 20170406
  Transmission Date: 20170830
  Serious: Yes (Other)
  Sender: FDA-Public Use
  Company Number: US-TORRENT-00002644

PATIENT
  Sex: Female

DRUGS (5)
  1. MINOCYCLINE [Suspect]
     Active Substance: MINOCYCLINE\MINOCYCLINE HYDROCHLORIDE
  2. PARACETAMOL [Concomitant]
     Active Substance: ACETAMINOPHEN
  3. IBUPROFEN. [Concomitant]
     Active Substance: IBUPROFEN
  4. METHOTREXATE. [Concomitant]
     Active Substance: METHOTREXATE
  5. COLCHICINE. [Concomitant]
     Active Substance: COLCHICINE

REACTIONS (1)
  - Polyarteritis nodosa [Recovered/Resolved]
